FAERS Safety Report 12555997 (Version 7)
Quarter: 2017Q1

REPORT INFORMATION
  Report Type: Report from Study
  Country: FR (occurrence: FR)
  Receive Date: 20160714
  Receipt Date: 20170201
  Transmission Date: 20170428
  Serious: Yes (Death, Hospitalization)
  Sender: FDA-Public Use
  Company Number: FR-ROCHE-1791710

PATIENT
  Age: 74 Year
  Sex: Male
  Weight: 56 kg

DRUGS (20)
  1. ZELITREX [Concomitant]
     Active Substance: VALACYCLOVIR HYDROCHLORIDE
     Indication: PROPHYLAXIS
     Route: 065
     Dates: start: 20130330
  2. DAFALGAN [Concomitant]
     Active Substance: ACETAMINOPHEN
     Indication: PREMEDICATION
     Route: 065
     Dates: start: 20130328
  3. MUCOMYSTENDO [Concomitant]
     Active Substance: ACETYLCYSTEINE
     Indication: BRONCHITIS
     Dosage: 1 PUFF PER DAY
     Route: 065
     Dates: start: 20140423
  4. RITUXIMAB [Suspect]
     Active Substance: RITUXIMAB
     Indication: NON-HODGKIN^S LYMPHOMA UNSPECIFIED HISTOLOGY INDOLENT
     Dosage: CYCLE 1
     Route: 042
     Dates: start: 20130329, end: 20130329
  5. CLAMOXIL [Concomitant]
     Indication: ANGINA PECTORIS
     Route: 065
     Dates: start: 20130712, end: 20130722
  6. PYOSTACINE [Concomitant]
     Active Substance: PRISTINAMYCIN
     Indication: BRONCHITIS
     Route: 065
     Dates: start: 20140416, end: 20140423
  7. NEULASTA [Concomitant]
     Active Substance: PEGFILGRASTIM
     Indication: PROPHYLAXIS
     Dosage: 6 MG AT EACH CYCLE
     Route: 065
     Dates: start: 20130401
  8. POLARAMINE [Concomitant]
     Active Substance: DEXCHLORPHENIRAMINE MALEATE
     Indication: PREMEDICATION
     Route: 065
     Dates: start: 20130328
  9. PREVISCAN (FRANCE) [Concomitant]
     Active Substance: FLUINDIONE
     Route: 065
  10. PYOSTACINE [Concomitant]
     Active Substance: PRISTINAMYCIN
     Route: 065
     Dates: start: 20140424, end: 20140504
  11. MEDROL [Concomitant]
     Active Substance: METHYLPREDNISOLONE
     Indication: BRONCHITIS
     Route: 065
     Dates: start: 20140416
  12. METHYLPREDNISOLONE. [Concomitant]
     Active Substance: METHYLPREDNISOLONE
     Indication: PREMEDICATION
     Route: 065
     Dates: start: 20130328
  13. DETURGYLONE (FRANCE) [Concomitant]
     Indication: BRONCHITIS
     Route: 065
     Dates: start: 20140416
  14. EXOMUC [Concomitant]
     Active Substance: ACETYLCYSTEINE
     Indication: BRONCHITIS
     Dosage: 3 BAGS PER DAY
     Route: 065
     Dates: start: 20140814, end: 20140820
  15. CEFTAZIDIME. [Concomitant]
     Active Substance: CEFTAZIDIME
     Indication: LOWER RESPIRATORY TRACT INFECTION
     Route: 065
     Dates: start: 20160526
  16. RITUXIMAB [Suspect]
     Active Substance: RITUXIMAB
     Indication: NON-HODGKIN^S LYMPHOMA UNSPECIFIED HISTOLOGY INDOLENT
     Dosage: ON 03/SEP/2015, RECEIVED LAST DOSE PRIOR TO SAE
     Route: 058
     Dates: start: 20130425
  17. BACTRIM [Concomitant]
     Active Substance: SULFAMETHOXAZOLE\TRIMETHOPRIM
     Indication: PROPHYLAXIS
     Dosage: 1 PILL PER DAY
     Route: 065
     Dates: start: 20130330
  18. INNOHEP [Concomitant]
     Active Substance: TINZAPARIN SODIUM
     Dosage: 10000 UI/DAY
     Route: 065
     Dates: start: 20130930
  19. AUGMENTIN [Concomitant]
     Active Substance: AMOXICILLIN\CLAVULANATE POTASSIUM
     Indication: BRONCHITIS
     Route: 065
     Dates: start: 20150818, end: 20150824
  20. LEVOFLOXACINE [Concomitant]
     Active Substance: LEVOFLOXACIN
     Indication: LOWER RESPIRATORY TRACT INFECTION
     Route: 065
     Dates: start: 20160526

REACTIONS (1)
  - Acute myeloid leukaemia [Fatal]

NARRATIVE: CASE EVENT DATE: 20160608
